FAERS Safety Report 10770048 (Version 3)
Quarter: 2020Q2

REPORT INFORMATION
  Report Type: Spontaneous
  Country: BR (occurrence: BR)
  Receive Date: 20150206
  Receipt Date: 20200612
  Transmission Date: 20200713
  Serious: Yes (Hospitalization, Disabling, Other)
  Sender: FDA-Public Use
  Company Number: BR-SA-2015SA013459

PATIENT

DRUGS (1)
  1. MYOZYME [Suspect]
     Active Substance: ALGLUCOSIDASE ALFA
     Indication: GLYCOGEN STORAGE DISEASE TYPE II
     Dosage: 20 MG/KG, QOW
     Route: 041
     Dates: start: 20081201

REACTIONS (7)
  - Hospitalisation [Unknown]
  - Muscle injury [Unknown]
  - Left ventricular hypertrophy [Unknown]
  - Hypokinesia [Unknown]
  - Disease progression [Not Recovered/Not Resolved]
  - Lung disorder [Unknown]
  - Walking disability [Unknown]

NARRATIVE: CASE EVENT DATE: 2016
